FAERS Safety Report 9252738 (Version 1)
Quarter: 2013Q2

REPORT INFORMATION
  Report Type: Spontaneous
  Country: US (occurrence: US)
  Receive Date: 20130424
  Receipt Date: 20130424
  Transmission Date: 20140414
  Serious: No
  Sender: FDA-Public Use
  Company Number: US-BAYER-2013-051670

PATIENT
  Sex: Female

DRUGS (1)
  1. ALEVE TABLET [Suspect]
     Indication: PAIN
     Dosage: UNK DF, OTHER FREQUENCY
     Route: 048
     Dates: start: 2011

REACTIONS (2)
  - Accidental exposure to product by child [None]
  - Incorrect drug administration duration [None]
